FAERS Safety Report 5857309-4 (Version None)
Quarter: 2008Q3

REPORT INFORMATION
  Report Type: 
  Country: None (occurrence: None)
  Receive Date: 20080822
  Receipt Date: 20080811
  Transmission Date: 20090109
  Serious: Yes (Hospitalization)
  Sender: FDA-Public Use
  Company Number: 8035862

PATIENT
  Age: 4 Year
  Sex: Male
  Weight: 17.9 kg

DRUGS (5)
  1. KEPPRA [Suspect]
     Dosage: 500 MG 2/D
  2. VALPROIC ACID [Concomitant]
  3. BACLOFEN [Concomitant]
  4. PEPCID [Concomitant]
  5. SINGULAIR [Concomitant]

REACTIONS (3)
  - MEDICATION ERROR [None]
  - RESPIRATORY DISORDER [None]
  - WRONG TECHNIQUE IN DRUG USAGE PROCESS [None]
